FAERS Safety Report 5881017-7 (Version None)
Quarter: 2008Q3

REPORT INFORMATION
  Report Type: 
  Country: None (occurrence: None)
  Receive Date: 20080911
  Receipt Date: 20080828
  Transmission Date: 20090109
  Serious: Yes (Hospitalization)
  Sender: FDA-Public Use
  Company Number: 238237J08USA

PATIENT
  Age: 43 Year
  Sex: Female

DRUGS (8)
  1. REBIF [Suspect]
     Indication: MULTIPLE SCLEROSIS
     Dosage: 44 MCG, 3 IN 1 WEEKS, SUBCUTANEOUS
     Route: 058
     Dates: start: 20080707
  2. SOLU-MEDROL [Suspect]
     Indication: VISUAL IMPAIRMENT
  3. NORVASC [Concomitant]
  4. INDAPAMIDE [Concomitant]
  5. ELAVIL [Concomitant]
  6. LIPITOR [Concomitant]
  7. ZETIA [Concomitant]
  8. WELCHOL [Concomitant]

REACTIONS (2)
  - HYPERTENSION [None]
  - VENTRICULAR EXTRASYSTOLES [None]
